FAERS Safety Report 5305445-3 (Version None)
Quarter: 2007Q2

REPORT INFORMATION
  Report Type: 
  Country: None (occurrence: None)
  Receive Date: 20070424
  Receipt Date: 20070413
  Transmission Date: 20071010
  Serious: Yes (Other)
  Sender: FDA-Public Use
  Company Number: US-JNJFOC-20070403643

PATIENT
  Sex: Female
  Weight: 58.97 kg

DRUGS (5)
  1. DURAGESIC-100 [Suspect]
     Indication: PAIN MANAGEMENT
     Route: 062
  2. TENORETIC 100 [Concomitant]
     Indication: HYPERTENSION
     Route: 048
  3. LYRICA [Concomitant]
     Indication: BURNING SENSATION
     Route: 048
  4. LORTAB [Concomitant]
     Indication: PAIN
     Route: 048
  5. VITAMIN B-12 [Concomitant]
     Route: 050

REACTIONS (3)
  - DEPRESSION [None]
  - HYPOTHYROIDISM [None]
  - INTERVERTEBRAL DISC PROTRUSION [None]
